FAERS Safety Report 21735034 (Version 2)
Quarter: 2023Q1

REPORT INFORMATION
  Report Type: Spontaneous
  Country: US (occurrence: US)
  Receive Date: 20221215
  Receipt Date: 20230106
  Transmission Date: 20230417
  Serious: Yes (Other)
  Sender: FDA-Public Use
  Company Number: US-PFIZER INC-PV202200122987

PATIENT
  Age: 88 Year
  Sex: Female
  Weight: 58.957 kg

DRUGS (1)
  1. PREMARIN [Suspect]
     Active Substance: ESTROGENS, CONJUGATED
     Indication: Hysterectomy
     Dosage: 0.625 (UNSPECIFIED)
     Dates: start: 1994

REACTIONS (2)
  - Hip fracture [Recovering/Resolving]
  - Off label use [Unknown]
